FAERS Safety Report 10847220 (Version 1)
Quarter: 2015Q1

REPORT INFORMATION
  Report Type: Report from Study
  Country: HU (occurrence: HU)
  Receive Date: 20150220
  Receipt Date: 20150220
  Transmission Date: 20150721
  Serious: Yes (Hospitalization)
  Sender: FDA-Public Use
  Company Number: HU-AMGEN-HUNCT2015005337

PATIENT
  Age: 69 Year
  Sex: Male
  Weight: 75 kg

DRUGS (12)
  1. ATORIS [Concomitant]
     Active Substance: ATORVASTATIN CALCIUM
     Indication: HYPERLIPIDAEMIA
     Dosage: 40 MG, UNK
     Route: 048
     Dates: start: 20140331
  2. EPOETIN ZETA [Concomitant]
     Active Substance: ERYTHROPOIETIN
     Indication: ANAEMIA
     Dosage: 4000 IU, UNK
     Route: 058
     Dates: start: 20141229, end: 20150113
  3. COVEREX AS [Concomitant]
     Indication: HYPERTENSION
     Dosage: 5 MG, UNK
     Route: 048
     Dates: start: 20140915, end: 20150120
  4. FOLIC ACID. [Concomitant]
     Active Substance: FOLIC ACID
     Indication: FOLATE DEFICIENCY
     Dosage: 3 MG, UNK
     Route: 048
     Dates: start: 20140624
  5. CONCOR [Concomitant]
     Active Substance: BISOPROLOL FUMARATE
     Indication: HYPERTENSION
     Dosage: 2.5 MG, QD
     Route: 048
     Dates: start: 20140916
  6. CARFILZOMIB [Suspect]
     Active Substance: CARFILZOMIB
     Indication: PLASMA CELL MYELOMA
     Dosage: 36 MG/M2, PER CHEMO REGIM
     Route: 042
     Dates: start: 20140415
  7. MELPHALAN [Suspect]
     Active Substance: MELPHALAN
     Indication: PLASMA CELL MYELOMA
     Dosage: 16 MG, PER CHEMO REGIM
     Route: 048
     Dates: start: 20140415
  8. PREDNISONE. [Suspect]
     Active Substance: PREDNISONE
     Indication: PLASMA CELL MYELOMA
     Dosage: 115 MG, PER CHEMO REGIM
     Route: 048
     Dates: start: 20140415
  9. ACICLOVIR [Concomitant]
     Active Substance: ACYCLOVIR
     Indication: ANTIVIRAL PROPHYLAXIS
     Dosage: 400 MG, QD
     Route: 048
     Dates: start: 20140415
  10. NORMODIPINE [Concomitant]
     Indication: HYPERTENSION
     Dosage: 5 MG, AS NECESSARY
     Route: 048
     Dates: start: 20140422
  11. NOLPAZA [Concomitant]
     Active Substance: PANTOPRAZOLE SODIUM
     Indication: PROPHYLAXIS
     Dosage: 40 MG, UNK
     Route: 048
     Dates: start: 20140606
  12. ALGOPYRIN                          /00046501/ [Concomitant]
     Indication: PYREXIA
     Dosage: 500 MG, AS NECESSARY
     Route: 048
     Dates: start: 20140513

REACTIONS (1)
  - Influenza [Recovered/Resolved]

NARRATIVE: CASE EVENT DATE: 20150119
